FAERS Safety Report 16164020 (Version 3)
Quarter: 2020Q3

REPORT INFORMATION
  Report Type: Report from Study
  Country: DK (occurrence: DK)
  Receive Date: 20190405
  Receipt Date: 20200909
  Transmission Date: 20201102
  Serious: Yes (Hospitalization, Other)
  Sender: FDA-Public Use
  Company Number: DK-JNJFOC-20190401876

PATIENT
  Age: 16 Year
  Sex: Male
  Weight: 50.2 kg

DRUGS (3)
  1. AMGEVITA [Suspect]
     Active Substance: ADALIMUMAB
     Indication: PRODUCT USED FOR UNKNOWN INDICATION
     Route: 065
  2. HUMIRA [Suspect]
     Active Substance: ADALIMUMAB
     Indication: CROHN^S DISEASE
     Route: 065
     Dates: start: 20150413
  3. REMICADE [Suspect]
     Active Substance: INFLIXIMAB
     Indication: CROHN^S DISEASE
     Route: 042
     Dates: start: 20120302, end: 20150216

REACTIONS (3)
  - Crohn^s disease [Recovered/Resolved]
  - Wound infection [Recovered/Resolved]
  - Ileal stenosis [Recovered/Resolved]

NARRATIVE: CASE EVENT DATE: 20181015
